FAERS Safety Report 8199355-4 (Version None)
Quarter: 2012Q1

REPORT INFORMATION
  Report Type: 
  Country: None (occurrence: None)
  Receive Date: 20120309
  Receipt Date: 20120307
  Transmission Date: 20120608
  Serious: Yes (Hospitalization, Other)
  Sender: FDA-Public Use
  Company Number: US-PFIZER INC-2012046852

PATIENT
  Sex: Male
  Weight: 78.912 kg

DRUGS (19)
  1. AMBIEN [Concomitant]
     Indication: SLEEP DISORDER
     Dosage: 10 MG, DAILY
  2. FLOVENT [Concomitant]
     Indication: EMPHYSEMA
     Dosage: 110 UG, DAILY
  3. CRESTOR [Concomitant]
     Indication: BLOOD CHOLESTEROL INCREASED
     Dosage: 40 MG, DAILY
  4. MELOXICAM [Concomitant]
     Indication: CARDIAC DISORDER
     Dosage: 7.5 MG, 1X/DAY
  5. CHANTIX [Suspect]
     Indication: SMOKING CESSATION THERAPY
     Dosage: 0.5 MG, 1X/DAY
     Route: 048
     Dates: start: 20120101, end: 20120101
  6. DILTIAZEM [Concomitant]
     Indication: CARDIAC DISORDER
     Dosage: 120 MG, DAILY
  7. DOC-Q-LACE [Concomitant]
     Indication: FAECES HARD
  8. CHANTIX [Suspect]
     Dosage: UNK
     Dates: start: 20120101, end: 20120101
  9. CITALOPRAM HYDROBROMIDE [Concomitant]
     Indication: CARDIAC DISORDER
     Dosage: 20 MG, DAILY
  10. OMEPRAZOLE [Concomitant]
     Indication: CARDIAC DISORDER
     Dosage: 20 MG, DAILY
  11. DOC-Q-LACE [Concomitant]
     Indication: PROPHYLAXIS
     Dosage: 100 MG, DAILY
  12. METOPROLOL TARTRATE [Concomitant]
     Dosage: 50 MG, 2X/DAY
  13. FAMOTIDINE [Concomitant]
     Dosage: 20 MG, DAILY
  14. TRAZODONE [Concomitant]
     Indication: SLEEP DISORDER
     Dosage: 50 MG, DAILY
  15. ALBUTEROL SULFATE [Concomitant]
     Indication: EMPHYSEMA
     Dosage: 90 UG, DAILY
  16. DILTIAZEM [Concomitant]
     Indication: ANEURYSM
  17. CITALOPRAM HYDROBROMIDE [Concomitant]
     Indication: ANEURYSM
  18. FOLIC ACID [Concomitant]
     Indication: BLOOD PRESSURE ABNORMAL
     Dosage: 1 MG, DAILY
  19. VITAMIN D [Concomitant]
     Dosage: 120 MG, DAILY

REACTIONS (3)
  - BLOOD PRESSURE FLUCTUATION [None]
  - HYPOTENSION [None]
  - HYPERTENSION [None]
